FAERS Safety Report 25242635 (Version 1)
Quarter: 2025Q2

REPORT INFORMATION
  Report Type: Spontaneous
  Country: IE (occurrence: IE)
  Receive Date: 20250428
  Receipt Date: 20250428
  Transmission Date: 20250717
  Serious: Yes (Hospitalization)
  Sender: MACLEODS
  Company Number: IE-MLMSERVICE-20250410-PI475883-00322-1

PATIENT

DRUGS (1)
  1. TRAMADOL [Suspect]
     Active Substance: TRAMADOL
     Indication: Fibromyalgia
     Dosage: 100 MG FOUR TIMES DAILY,
     Route: 065

REACTIONS (1)
  - Generalised tonic-clonic seizure [Recovered/Resolved]
